FAERS Safety Report 6001402-2 (Version None)
Quarter: 2008Q4

REPORT INFORMATION
  Report Type: 
  Country: None (occurrence: None)
  Receive Date: 20081215
  Receipt Date: 20081203
  Transmission Date: 20090506
  Serious: Yes (Hospitalization)
  Sender: FDA-Public Use
  Company Number: DE-ELI_LILLY_AND_COMPANY-DE200812000871

PATIENT
  Age: 88 Year
  Sex: Female

DRUGS (9)
  1. CYMBALTA [Suspect]
     Indication: DEPRESSION
     Dosage: 30 MG, DAILY (1/D)
     Route: 048
     Dates: start: 20081103, end: 20081112
  2. LEVOTHYROXINE SODIUM [Concomitant]
     Dosage: UNK, UNKNOWN
     Route: 065
  3. TOREM [Concomitant]
     Dosage: UNK, UNKNOWN
     Route: 065
  4. ASPIRIN [Concomitant]
     Dosage: UNK, UNKNOWN
     Route: 065
  5. MICARDIS [Concomitant]
     Dosage: UNK, UNKNOWN
     Route: 065
  6. CLEXANE [Concomitant]
     Dosage: UNK, UNKNOWN
     Route: 058
  7. FLUTICASONE PROPIONATE W/SALMETEROL XINAFOATE [Concomitant]
     Dosage: UNK, UNKNOWN
     Route: 065
  8. SORTIS [Concomitant]
     Dosage: UNK, UNKNOWN
     Route: 065
  9. MAGNESIUM VERLA /02088501/ [Concomitant]
     Dosage: UNK, UNKNOWN
     Route: 065

REACTIONS (2)
  - DYSURIA [None]
  - LEUKOPENIA [None]
